FAERS Safety Report 8199230-5 (Version None)
Quarter: 2012Q1

REPORT INFORMATION
  Report Type: 
  Country: None (occurrence: None)
  Receive Date: 20120309
  Receipt Date: 20120229
  Transmission Date: 20120608
  Serious: Yes (Other)
  Sender: FDA-Public Use
  Company Number: GB-ELI_LILLY_AND_COMPANY-GB201203000568

PATIENT
  Sex: Female

DRUGS (1)
  1. HUMULIN N [Suspect]
     Dosage: UNK

REACTIONS (2)
  - EXPIRED DRUG ADMINISTERED [None]
  - CONVULSION [None]
